FAERS Safety Report 8603350-8 (Version None)
Quarter: 2012Q3

REPORT INFORMATION
  Report Type: 
  Country: None (occurrence: None)
  Receive Date: 20120817
  Receipt Date: 20120810
  Transmission Date: 20120928
  Serious: Yes (Other)
  Sender: FDA-Public Use
  Company Number: AU-SANOFI-AVENTIS-2012SA058721

PATIENT
  Sex: Female

DRUGS (1)
  1. LANTUS [Suspect]
     Route: 058

REACTIONS (4)
  - DRUG ADMINISTRATION ERROR [None]
  - RETINAL HAEMORRHAGE [None]
  - JOB DISSATISFACTION [None]
  - DIABETIC RETINOPATHY [None]
